FAERS Safety Report 7488660-2 (Version None)
Quarter: 2011Q2

REPORT INFORMATION
  Report Type: 
  Country: None (occurrence: None)
  Receive Date: 20110518
  Receipt Date: 20110511
  Transmission Date: 20111010
  Serious: Yes (Death, Hospitalization)
  Sender: FDA-Public Use
  Company Number: A0926984A

PATIENT
  Age: 68 Year
  Sex: Male

DRUGS (3)
  1. CENTRUM SILVER [Concomitant]
  2. ADVAIR DISKUS 100/50 [Suspect]
     Indication: ASTHMA
     Dosage: 1PUFF TWICE PER DAY
     Route: 055
     Dates: start: 20030101
  3. UNSPECIFIED MEDICATION [Concomitant]
     Indication: GOUT

REACTIONS (5)
  - CARDIAC FAILURE CONGESTIVE [None]
  - RENAL FAILURE [None]
  - VISUAL IMPAIRMENT [None]
  - ASTHMA [None]
  - HEPATIC FAILURE [None]
